FAERS Safety Report 23879289 (Version 1)
Quarter: 2024Q2

REPORT INFORMATION
  Report Type: Spontaneous
  Country: FR (occurrence: FR)
  Receive Date: 20240521
  Receipt Date: 20240521
  Transmission Date: 20240716
  Serious: Yes (Life-Threatening, Hospitalization)
  Sender: FDA-Public Use
  Company Number: None

PATIENT
  Age: 51 Year
  Sex: Male
  Weight: 64.5 kg

DRUGS (21)
  1. PEMETREXED [Suspect]
     Active Substance: PEMETREXED
     Indication: Lung adenocarcinoma
     Dosage: 935 MG, UNKNOWN
     Route: 042
     Dates: start: 20240411, end: 20240411
  2. KEYTRUDA [Suspect]
     Active Substance: PEMBROLIZUMAB
     Indication: Lung adenocarcinoma
     Dosage: 200 MG, UNKNOWN
     Route: 042
     Dates: start: 20240222, end: 20240222
  3. KEYTRUDA [Suspect]
     Active Substance: PEMBROLIZUMAB
     Dosage: 200 MG, UNKNOWN
     Route: 042
     Dates: start: 20240313, end: 20240313
  4. NALOXEGOL OXALATE [Concomitant]
     Active Substance: NALOXEGOL OXALATE
     Indication: Product used for unknown indication
     Dosage: 25 MG LE MATIN
     Route: 048
  5. MOVICOL [MACROGOL 4000;POTASSIUM CHLORIDE;SOD [Concomitant]
     Indication: Product used for unknown indication
     Dosage: 1 DOSAGE FORM, EACH MORNING
     Route: 048
  6. VENLAFAXINE HYDROCHLORIDE [Concomitant]
     Active Substance: VENLAFAXINE HYDROCHLORIDE
     Indication: Product used for unknown indication
     Dosage: 225 MG, EACH MORNING
     Route: 048
  7. KARDEGIC [Concomitant]
     Active Substance: ASPIRIN DL-LYSINE
     Indication: Product used for unknown indication
     Dosage: 100 MG, DAILY
     Route: 048
  8. INDAPAMIDE\PERINDOPRIL ARGININE [Concomitant]
     Active Substance: INDAPAMIDE\PERINDOPRIL ARGININE
     Indication: Product used for unknown indication
     Dosage: 225 MG, EACH MORNING
     Route: 048
  9. CARBOPLATIN [Concomitant]
     Active Substance: CARBOPLATIN
     Indication: Lung adenocarcinoma
     Dosage: 442.25 MG
     Route: 042
     Dates: start: 20240313, end: 20240313
  10. CARBOPLATIN [Concomitant]
     Active Substance: CARBOPLATIN
     Dosage: 374.25 MG
     Route: 042
     Dates: start: 20240201, end: 20240201
  11. CARBOPLATIN [Concomitant]
     Active Substance: CARBOPLATIN
     Dosage: 417.35 MG
     Route: 042
     Dates: start: 20240222, end: 20240222
  12. VALPROATE SODIUM [Concomitant]
     Active Substance: VALPROATE SODIUM
     Indication: Product used for unknown indication
     Dosage: 500 MG 2 CP MATIN ET SOIR
     Route: 048
  13. ALPRAZOLAM [Concomitant]
     Active Substance: ALPRAZOLAM
     Indication: Product used for unknown indication
     Dosage: 0.5 MG MATIN ET SOIR
     Route: 048
  14. ONDANSETRON [Concomitant]
     Active Substance: ONDANSETRON
     Indication: Product used for unknown indication
     Dosage: 8 MG MATIN ET SOIR
     Route: 048
  15. ATORVASTATIN [Concomitant]
     Active Substance: ATORVASTATIN
     Indication: Product used for unknown indication
     Dosage: 40 MG 2 CP LE SOIR
     Route: 048
  16. SKENAN [Concomitant]
     Active Substance: MORPHINE SULFATE
     Indication: Product used for unknown indication
     Dosage: 20 MG MATIN ET SOIR
     Route: 048
  17. NICOPATCH [Concomitant]
     Active Substance: NICOTINE
     Indication: Product used for unknown indication
     Dosage: 21MG/24H
     Route: 062
  18. MORPHINE SULFATE [Concomitant]
     Active Substance: MORPHINE SULFATE
     Indication: Product used for unknown indication
     Dosage: EN SI BESOIN TOUTES LES 4 HEURES
     Route: 048
  19. PACLITAXEL [Concomitant]
     Active Substance: PACLITAXEL
     Indication: Lung adenocarcinoma
     Dosage: 307.2 MG
     Route: 042
     Dates: start: 20240313, end: 20240313
  20. PACLITAXEL [Concomitant]
     Active Substance: PACLITAXEL
     Dosage: 382 MG
     Route: 042
     Dates: start: 20240222, end: 20240222
  21. VERAPAMIL HYDROCHLORIDE [Concomitant]
     Active Substance: VERAPAMIL HYDROCHLORIDE
     Indication: Product used for unknown indication
     Dosage: 120 MG LE MATIN
     Route: 048

REACTIONS (2)
  - Haemophagocytic lymphohistiocytosis [Recovering/Resolving]
  - Rash [Recovering/Resolving]

NARRATIVE: CASE EVENT DATE: 20240423
